FAERS Safety Report 21774229 (Version 1)
Quarter: 2022Q4

REPORT INFORMATION
  Report Type: Spontaneous
  Country: DK (occurrence: DK)
  Receive Date: 20221224
  Receipt Date: 20221224
  Transmission Date: 20230113
  Serious: Yes (Other)
  Sender: FDA-Public Use
  Company Number: DK-AMGEN-DNKSP2022217824

PATIENT

DRUGS (6)
  1. PROLIA [Suspect]
     Active Substance: DENOSUMAB
     Indication: Osteoporosis
     Dosage: UNK
     Route: 065
  2. VITAMIN D [Concomitant]
     Active Substance: VITAMIN D NOS
  3. CALCIUM [Concomitant]
     Active Substance: CALCIUM
  4. RALOXIFENE [Concomitant]
     Active Substance: RALOXIFENE
  5. STRONTIUM RANELATE [Concomitant]
     Active Substance: STRONTIUM RANELATE
  6. PARATHYROID HORMONE [Concomitant]
     Active Substance: PARATHYROID HORMONE

REACTIONS (1)
  - Osteoporotic fracture [Unknown]
